FAERS Safety Report 21120101 (Version 3)
Quarter: 2022Q3

REPORT INFORMATION
  Report Type: Report from Study
  Country: GB (occurrence: GB)
  Receive Date: 20220722
  Receipt Date: 20220812
  Transmission Date: 20221027
  Serious: Yes (Hospitalization, Other)
  Sender: FDA-Public Use
  Company Number: GB-CELLTRION INC.-2020GB035225

PATIENT

DRUGS (150)
  1. TRASTUZUMAB [Suspect]
     Active Substance: TRASTUZUMAB
     Indication: Breast cancer metastatic
     Dosage: 8 MG, Q3W, INFUSION, SOLUTION; PAIN FROM METASTASES (DOSE FORM: 293)
     Route: 042
     Dates: start: 20171108
  2. TRASTUZUMAB [Suspect]
     Active Substance: TRASTUZUMAB
     Indication: HER2 positive breast cancer
     Dosage: 8 MILLIGRAM, Q3WK (PHARMACEUTICAL DOSE FORM: 293); PAIN FROM METASTASES
     Route: 041
     Dates: start: 20171108
  3. TRASTUZUMAB [Suspect]
     Active Substance: TRASTUZUMAB
     Indication: Breast cancer
     Dosage: UNK, PHARMACEUTICAL DOSE FORM: 293; PAIN FROM METASTASES
  4. TRASTUZUMAB [Suspect]
     Active Substance: TRASTUZUMAB
     Dosage: 8 MG, EVERY 3 WEEKS (PAIN FROM METASTASES)
     Route: 042
     Dates: start: 20171108
  5. TRASTUZUMAB [Suspect]
     Active Substance: TRASTUZUMAB
     Dosage: 8 MG EVERY 3 WEEKS (PAIN FROM METASTASES)
     Route: 042
     Dates: start: 20171129
  6. TRASTUZUMAB [Suspect]
     Active Substance: TRASTUZUMAB
     Dosage: 8 MG EVERY 3 WEEKS (PAIN FROM METASTASES)
     Route: 042
     Dates: start: 20211015
  7. TRASTUZUMAB [Suspect]
     Active Substance: TRASTUZUMAB
     Dosage: 8 MG, Q3W, INFUSION, SOLUTION
     Route: 042
     Dates: start: 20171108
  8. TRASTUZUMAB [Suspect]
     Active Substance: TRASTUZUMAB
     Dosage: 600 MILLIGRAM,Q3WK (PHARMACEUUTICAL DOSE FORM: 293)
     Route: 058
     Dates: start: 20211015
  9. TRASTUZUMAB [Suspect]
     Active Substance: TRASTUZUMAB
     Dosage: 651 MILLIGRAM, Q3WK (PHARMACEUTICAL DOSE: 293)
     Route: 042
     Dates: start: 20171129, end: 20210903
  10. TRASTUZUMAB [Suspect]
     Active Substance: TRASTUZUMAB
     Dosage: 882 MILLIGRAM
     Route: 042
     Dates: start: 20171108, end: 20171129
  11. TRASTUZUMAB [Suspect]
     Active Substance: TRASTUZUMAB
     Dosage: 651 MILLIGRAM EVERY 3 WEEKS
     Route: 042
     Dates: start: 20171129, end: 20210903
  12. TRASTUZUMAB [Suspect]
     Active Substance: TRASTUZUMAB
     Dosage: 651 MILLIGRAM EVERY 3 WEEKS
     Route: 042
     Dates: start: 20171129, end: 20210903
  13. TRASTUZUMAB [Suspect]
     Active Substance: TRASTUZUMAB
     Dosage: 882 MG (PHARMACEUUTICAL DOSE FORM: 293)
     Route: 042
     Dates: start: 20171108, end: 20171129
  14. TRASTUZUMAB [Suspect]
     Active Substance: TRASTUZUMAB
     Dosage: 882 MG (PHARMACEUUTICAL DOSE FORM: 293)
     Route: 042
     Dates: start: 20171108, end: 20171129
  15. TRASTUZUMAB [Suspect]
     Active Substance: TRASTUZUMAB
     Indication: Breast cancer metastatic
     Dosage: 8 MILLIGRAM, Q3WK; PAIN FROM METASTASES
     Route: 042
     Dates: start: 20171108
  16. TRASTUZUMAB [Suspect]
     Active Substance: TRASTUZUMAB
     Indication: HER2 positive breast cancer
     Dosage: 8 MG, Q3W, INFUSION, SOLUTION; PAIN FROM METASTASES
     Route: 042
     Dates: start: 20171108
  17. PERTUZUMAB [Suspect]
     Active Substance: PERTUZUMAB
     Indication: Breast cancer metastatic
     Dosage: 840 MG, Q3WK PAIN FROM METASTASES
     Route: 042
     Dates: start: 20181120
  18. PERTUZUMAB [Suspect]
     Active Substance: PERTUZUMAB
     Indication: HER2 positive breast cancer
     Dosage: PAIN FROM METASTASES
  19. PERTUZUMAB [Suspect]
     Active Substance: PERTUZUMAB
     Indication: Breast cancer
     Dosage: 840 MG, Q3W
     Route: 042
     Dates: start: 20181120
  20. PERTUZUMAB [Suspect]
     Active Substance: PERTUZUMAB
     Dosage: 840 MG, Q3W, PAIN FROM METASTASES (DOSE FORM:230)
     Route: 042
     Dates: start: 20181120
  21. PERTUZUMAB [Suspect]
     Active Substance: PERTUZUMAB
     Dosage: (DOSE FORM:230) PAIN FROM METASTASES
     Route: 065
  22. PERTUZUMAB [Suspect]
     Active Substance: PERTUZUMAB
     Dosage: 840 MG EVERY 3 WEEKS (PAIN FROM METASTASES)
     Route: 042
     Dates: start: 20171108
  23. PERTUZUMAB [Suspect]
     Active Substance: PERTUZUMAB
     Dosage: 840 MG EVERY 3 WEEKS (PAIN FROM METASTASES)
     Route: 042
     Dates: start: 20171129
  24. PERTUZUMAB [Suspect]
     Active Substance: PERTUZUMAB
     Dosage: 840 MG, Q3W (SOLUTION FOR INFUSION)
     Route: 042
     Dates: start: 20181120
  25. PERTUZUMAB [Suspect]
     Active Substance: PERTUZUMAB
     Indication: Breast cancer metastatic
     Dosage: 840 MILLIGRAM, Q3WK
     Route: 042
     Dates: start: 20181120
  26. PERTUZUMAB [Suspect]
     Active Substance: PERTUZUMAB
     Indication: HER2 positive breast cancer
     Dosage: 420 MG EVERY 3 WEEKS (PAIN FROM METASTASES)
     Route: 042
     Dates: start: 20171129
  27. PERTUZUMAB [Suspect]
     Active Substance: PERTUZUMAB
     Dosage: 840 MG EVERY 3 WEEKS (PAIN FROM METASTASES)
     Route: 042
     Dates: start: 20171108
  28. PERTUZUMAB [Suspect]
     Active Substance: PERTUZUMAB
     Dosage: 230
     Route: 065
  29. PERTUZUMAB [Suspect]
     Active Substance: PERTUZUMAB
     Dosage: 840 MG EVERY 3 WEEKS (PAIN FROM METASTASES)
     Route: 042
     Dates: start: 20171129
  30. PERTUZUMAB [Suspect]
     Active Substance: PERTUZUMAB
     Indication: HER2 positive breast cancer
     Dosage: DOSE FORM: 230 (PAIN FROM METASTASES)
     Route: 065
  31. PERTUZUMAB [Suspect]
     Active Substance: PERTUZUMAB
     Indication: Breast cancer metastatic
     Dosage: 420 MG, 1/WEEK
     Route: 042
     Dates: start: 20171129, end: 20210924
  32. PERTUZUMAB [Suspect]
     Active Substance: PERTUZUMAB
     Dosage: 420 MG, 1/WEEK
     Route: 042
     Dates: start: 20171129, end: 20210924
  33. PERTUZUMAB [Suspect]
     Active Substance: PERTUZUMAB
     Dosage: 420 MG, 1/WEEK
     Route: 042
     Dates: start: 20171129, end: 20210924
  34. PERTUZUMAB [Suspect]
     Active Substance: PERTUZUMAB
     Dosage: 420 MG, 1/WEEK
     Route: 042
     Dates: start: 20171129, end: 20210924
  35. PERTUZUMAB [Suspect]
     Active Substance: PERTUZUMAB
     Dosage: 840 MG EVERY 3 WEEKS
     Route: 042
     Dates: start: 20171107, end: 20171129
  36. PERTUZUMAB [Suspect]
     Active Substance: PERTUZUMAB
     Dosage: 840 MG EVERY 3 WEEKS
     Route: 042
     Dates: start: 20171107, end: 20171129
  37. PERTUZUMAB [Suspect]
     Active Substance: PERTUZUMAB
     Dosage: 840 MG EVERY 3 WEEKS
     Route: 042
     Dates: start: 20171107, end: 20171129
  38. PERTUZUMAB [Suspect]
     Active Substance: PERTUZUMAB
     Dosage: 840 MG EVERY 3 WEEKS
     Route: 042
     Dates: start: 20171107, end: 20171129
  39. PERTUZUMAB [Suspect]
     Active Substance: PERTUZUMAB
     Dosage: 600 MG EVERY 3 WEEKS
     Route: 058
     Dates: start: 20211015
  40. PERTUZUMAB [Suspect]
     Active Substance: PERTUZUMAB
     Dosage: 600 MG EVERY 3 WEEKS
     Route: 058
     Dates: start: 20211015
  41. PERTUZUMAB [Suspect]
     Active Substance: PERTUZUMAB
     Dosage: 600 MG EVERY 3 WEEKS
     Route: 058
     Dates: start: 20211015
  42. PERTUZUMAB [Suspect]
     Active Substance: PERTUZUMAB
     Dosage: 600 MG EVERY 3 WEEKS
     Route: 058
     Dates: start: 20211015
  43. PERTUZUMAB [Suspect]
     Active Substance: PERTUZUMAB
     Dosage: 840 MG EVERY 3 WEEKS (DOSE FORM: INFUSION, SOLUTION)
     Route: 042
     Dates: start: 20181120
  44. PERTUZUMAB [Suspect]
     Active Substance: PERTUZUMAB
     Dosage: 840 MG EVERY 3 WEEKS
     Route: 042
     Dates: start: 20181120
  45. PERTUZUMAB [Suspect]
     Active Substance: PERTUZUMAB
     Dosage: 840 MG EVERY 3 WEEKS
     Route: 042
     Dates: start: 20181120
  46. PERTUZUMAB [Suspect]
     Active Substance: PERTUZUMAB
     Dosage: 840 MG EVERY 3 WEEKS
     Route: 042
     Dates: start: 20181120
  47. PERTUZUMAB [Suspect]
     Active Substance: PERTUZUMAB
     Dosage: 840 MG EVERY 3 WEEKS (DOSE FORM: INFUSION, SOLUTION)
     Route: 042
     Dates: start: 20171108
  48. PERTUZUMAB [Suspect]
     Active Substance: PERTUZUMAB
     Dosage: 420 MG EVERY 3 WEEK (DOSE FORM: INFUSION, SOLUTION)
     Route: 042
     Dates: start: 20171129
  49. PERTUZUMAB [Suspect]
     Active Substance: PERTUZUMAB
     Dosage: 840 MILLIGRAM, Q3WK; CUMULATIVE DOSE TO FIRST REACTION: 2001.6666 MG; PAIN FROM METASTASES
     Route: 042
     Dates: start: 20181120
  50. PERTUZUMAB [Suspect]
     Active Substance: PERTUZUMAB
     Indication: Breast cancer metastatic
     Dosage: 840 MG, Q3W; PAIN FROM METASTASES
     Route: 042
     Dates: start: 20181120
  51. DOCETAXEL [Suspect]
     Active Substance: DOCETAXEL
     Indication: Breast cancer metastatic
     Dosage: 148 MILLIGRAM, Q3WK; PAIN FROM METASTASES (CUMULATIVE DOSE TO FIRST REACTION: 2304.278 MG); 148 MG,
     Route: 042
     Dates: start: 20171108, end: 20180131
  52. DOCETAXEL [Suspect]
     Active Substance: DOCETAXEL
     Indication: HER2 positive breast cancer
     Dosage: 592 MILLIGRAM; PAIN FROM METASTASES
     Route: 042
  53. DOCETAXEL [Suspect]
     Active Substance: DOCETAXEL
     Indication: Breast cancer
     Dosage: 592 MILLIGRAM; PAIN FROM METASTASES
     Route: 065
  54. DOCETAXEL [Suspect]
     Active Substance: DOCETAXEL
     Dosage: UNK
     Route: 065
  55. DOCETAXEL [Suspect]
     Active Substance: DOCETAXEL
     Dosage: 592 MILLIGRAM; PAIN FROM METASTASES
     Route: 042
  56. DOCETAXEL [Suspect]
     Active Substance: DOCETAXEL
     Dosage: (CUMULATIVE DOSE TO FIRST REACTION: 2304.278 MG)
     Dates: start: 20171108, end: 20180131
  57. DOCETAXEL [Suspect]
     Active Substance: DOCETAXEL
     Indication: Breast cancer metastatic
     Dosage: 592 MG (PAIN FROM METASTASES)
     Route: 065
  58. DOCETAXEL [Suspect]
     Active Substance: DOCETAXEL
     Dosage: 148 MG, EVERY 3 WEEKS
     Route: 042
     Dates: start: 20171108, end: 20180131
  59. HYALURONIDASE (HUMAN RECOMBINANT) [Suspect]
     Active Substance: HYALURONIDASE (HUMAN RECOMBINANT)
     Indication: Breast cancer metastatic
     Dosage: 600 MG, Q3WK
     Route: 058
     Dates: start: 20211015
  60. BECLOMETHASONE DIPROPIONATE [Concomitant]
     Active Substance: BECLOMETHASONE DIPROPIONATE
     Indication: Cancer pain
     Dosage: DOSE 2 PUFF, 0.5 DAY
     Route: 055
  61. BECLOMETHASONE DIPROPIONATE [Concomitant]
     Active Substance: BECLOMETHASONE DIPROPIONATE
     Dosage: 2 PUFF, BID PAIN FROM METASTASES
     Route: 055
  62. BECLOMETHASONE DIPROPIONATE [Concomitant]
     Active Substance: BECLOMETHASONE DIPROPIONATE
     Dosage: 2 OT, QD (DOSE 2 PUFF)
     Route: 055
  63. BECLOMETHASONE DIPROPIONATE [Concomitant]
     Active Substance: BECLOMETHASONE DIPROPIONATE
     Dosage: 2 PUFF, 0.5 DAY
     Route: 055
  64. BECLOMETHASONE DIPROPIONATE [Concomitant]
     Active Substance: BECLOMETHASONE DIPROPIONATE
     Dosage: UNK MILLIGRAM, BID; PAIN FROM METASTASES
     Route: 055
  65. SODIUM PICOSULFATE [Concomitant]
     Active Substance: SODIUM PICOSULFATE
     Indication: Constipation
     Dosage: DOSE 10 OTHER (10 MG IN 10 ML) PAIN FROM METASTASES
     Route: 048
  66. SODIUM PICOSULFATE [Concomitant]
     Active Substance: SODIUM PICOSULFATE
     Dosage: 10 MG, QD
     Route: 048
  67. SODIUM PICOSULFATE [Concomitant]
     Active Substance: SODIUM PICOSULFATE
     Dosage: UNK, QD
     Route: 048
  68. SODIUM PICOSULFATE [Concomitant]
     Active Substance: SODIUM PICOSULFATE
     Dosage: DOSE 10 OTHER (10 MG IN 10 ML), QD; PAIN FROM METASTASES
     Route: 048
  69. SODIUM PICOSULFATE [Concomitant]
     Active Substance: SODIUM PICOSULFATE
     Dosage: 10 MILLIGRAM PER 10 MILLILITRE, QD, PAIN FROM METASTASES
     Route: 048
  70. SODIUM PICOSULFATE [Concomitant]
     Active Substance: SODIUM PICOSULFATE
     Dosage: DOSE 10 OTHER (10 MG IN 10 ML)
     Route: 048
  71. OMEPRAZOLE [Concomitant]
     Active Substance: OMEPRAZOLE
     Indication: Product used for unknown indication
     Dosage: 40 MILLIGRAM, QD;  PAIN FROM METASTASES
     Route: 048
     Dates: start: 201710
  72. OMEPRAZOLE [Concomitant]
     Active Substance: OMEPRAZOLE
     Dosage: 40 MG, QD (PHARMACEUTICAL DOSE FORM: 5)
     Route: 048
     Dates: start: 201710
  73. OXYCODONE [Concomitant]
     Active Substance: OXYCODONE
     Indication: Cancer pain
     Dosage: 110 MG, 0.5 PER DAY (PAIN FROM METASTASES)
     Route: 048
  74. OXYCODONE [Concomitant]
     Active Substance: OXYCODONE
     Dosage: 220 MILLIGRAM, QD (PAIN FROM METASTASES)
  75. OXYCODONE [Concomitant]
     Active Substance: OXYCODONE
     Dosage: 110 MG, BID 0.5 PER DAY (PAIN FROM METASTASES)
     Route: 048
  76. OXYCODONE [Concomitant]
     Active Substance: OXYCODONE
     Dosage: 110 MILLIGRAM, BID; PAIN FROM METASTASES
     Route: 048
  77. SIMVASTATIN [Concomitant]
     Active Substance: SIMVASTATIN
     Indication: Product used for unknown indication
     Dosage: 40 MILLIGRAM, QD; PAIN FROM METASTASES (DOSE FORM: 245)
     Route: 048
  78. NITROFURANTOIN [Concomitant]
     Active Substance: NITROFURANTOIN
     Indication: Urinary tract infection
     Dosage: 50 MG,0.25
     Route: 048
     Dates: start: 20181103, end: 20181109
  79. NITROFURANTOIN [Concomitant]
     Active Substance: NITROFURANTOIN
     Dosage: 50 MG; PAIN FROM METASTASES
     Route: 048
     Dates: start: 20181103, end: 20181109
  80. NITROFURANTOIN [Concomitant]
     Active Substance: NITROFURANTOIN
     Dosage: 50 MILLIGRAM (CUMULATIVE DOSE: 6608.333 MG)
     Route: 048
     Dates: start: 20181103, end: 20181109
  81. NITROFURANTOIN [Concomitant]
     Active Substance: NITROFURANTOIN
     Dosage: 50 MG, 0.25 PER DAY (PAIN FORM METASTASES)
     Route: 048
     Dates: start: 20181103, end: 20181109
  82. NITROFURANTOIN [Concomitant]
     Active Substance: NITROFURANTOIN
     Dosage: 200 MG, QD PAIN FROM METASTASES (CUMULATIVE DOSE: 1400 MG)
     Route: 048
     Dates: start: 20181103, end: 20181109
  83. ALBUTEROL [Concomitant]
     Active Substance: ALBUTEROL
     Indication: Product used for unknown indication
     Dosage: PRN (DOSE 2 PUFF)
     Route: 055
  84. ALBUTEROL [Concomitant]
     Active Substance: ALBUTEROL
     Dosage: DOSE 2 PUFF; PAIN FROM METASTASES
     Route: 055
  85. ALBUTEROL [Concomitant]
     Active Substance: ALBUTEROL
     Dosage: PRN (DOSE 2 PUFF); PAIN FROM METASTASES
     Route: 055
  86. LINEZOLID [Concomitant]
     Active Substance: LINEZOLID
     Indication: Device related infection
     Dosage: 600 MILLIGRAM; PAIN FROM METASTASES
     Route: 048
     Dates: start: 20191125, end: 20191130
  87. LINEZOLID [Concomitant]
     Active Substance: LINEZOLID
     Dosage: UNK
  88. LINEZOLID [Concomitant]
     Active Substance: LINEZOLID
     Dosage: PAIN FROM METASTASES
  89. CHOLECALCIFEROL [Concomitant]
     Active Substance: CHOLECALCIFEROL
     Indication: Product used for unknown indication
     Dosage: 1 DF,0.5
     Route: 048
  90. CALCIUM CARBONATE [Concomitant]
     Active Substance: CALCIUM CARBONATE
     Indication: Product used for unknown indication
     Dosage: 1 DF,0.5
     Route: 048
  91. CALCIUM CARBONATE [Concomitant]
     Active Substance: CALCIUM CARBONATE
     Dosage: 1 DOSAGE FORM, QD; PAIN FROM METASTASES
     Route: 048
  92. CALCIUM CARBONATE [Concomitant]
     Active Substance: CALCIUM CARBONATE
     Dosage: 1 DOSAGE FORM, BID; PAIN FROM METASTASES
     Route: 048
  93. CALCIUM CARBONATE [Concomitant]
     Active Substance: CALCIUM CARBONATE
     Dosage: 1 DOSAGE FORM, QD
     Route: 048
  94. CALCIUM CARBONATE [Concomitant]
     Active Substance: CALCIUM CARBONATE
     Dosage: 1 DF,0.5
     Route: 048
  95. CALCIUM CARBONATE [Concomitant]
     Active Substance: CALCIUM CARBONATE
     Dosage: 1 DOSAGE FORM, QD
  96. CALCIUM CARBONATE [Concomitant]
     Active Substance: CALCIUM CARBONATE
     Dosage: 1 DOSAGE FORM, BID; PAIN FROM METASTASES
     Route: 048
  97. CALCIUM CARBONATE [Concomitant]
     Active Substance: CALCIUM CARBONATE
     Dosage: 2 DF, 1/DAY (DOSAGE FORM: 245)
     Route: 048
  98. MIRTAZAPINE [Concomitant]
     Active Substance: MIRTAZAPINE
     Indication: Product used for unknown indication
     Dosage: 45 MILLIGRAM, QD; PAIN FROM METASTASES
     Route: 048
  99. CALCIUM CARBONATE\CHOLECALCIFEROL [Concomitant]
     Active Substance: CALCIUM CARBONATE\CHOLECALCIFEROL
     Indication: Product used for unknown indication
     Dosage: 1 DF, PER 0.5 DAY, PAIN FROM METASTASES
     Route: 048
  100. CALCIUM CARBONATE\CHOLECALCIFEROL [Concomitant]
     Active Substance: CALCIUM CARBONATE\CHOLECALCIFEROL
     Dosage: 2 DF, 1/DAY (DOSAGE FORM: 245) PAIN FROM METASTASES (1 DOSAGE FORM, BID)
     Route: 048
  101. CALCIUM CARBONATE\CHOLECALCIFEROL [Concomitant]
     Active Substance: CALCIUM CARBONATE\CHOLECALCIFEROL
     Dosage: 2 DF, 1/DAY (DOSAGE FORM: 245)
  102. RAMIPRIL [Concomitant]
     Active Substance: RAMIPRIL
     Indication: Product used for unknown indication
     Dosage: 1.25 MILLIGRAM, QD; PAIN FROM METASTASES (DOSE FORM: 245)
     Route: 048
  103. BECLOMETHASONE DIPROPIONATE [Concomitant]
     Active Substance: BECLOMETHASONE DIPROPIONATE
     Indication: Cancer pain
     Dosage: 2 OT, QD
  104. BECLOMETHASONE DIPROPIONATE [Concomitant]
     Active Substance: BECLOMETHASONE DIPROPIONATE
     Dosage: PUFF, BID
  105. BECLOMETHASONE DIPROPIONATE [Concomitant]
     Active Substance: BECLOMETHASONE DIPROPIONATE
     Dosage: DOSE 2 PUFF;
  106. BECLOMETHASONE DIPROPIONATE [Concomitant]
     Active Substance: BECLOMETHASONE DIPROPIONATE
     Dosage: 2 PUFF, BID
  107. BECLOMETHASONE DIPROPIONATE [Concomitant]
     Active Substance: BECLOMETHASONE DIPROPIONATE
     Dosage: DOSE 2 PUFF (0.5 DAY)
  108. BECLOMETHASONE DIPROPIONATE [Concomitant]
     Active Substance: BECLOMETHASONE DIPROPIONATE
     Dosage: 2 OT, QD (DOSE 2 PUFF)
  109. BECLOMETHASONE DIPROPIONATE [Concomitant]
     Active Substance: BECLOMETHASONE DIPROPIONATE
     Dosage: 0.5 DAY PUFF
     Route: 055
  110. BECLOMETHASONE DIPROPIONATE [Concomitant]
     Active Substance: BECLOMETHASONE DIPROPIONATE
     Dosage: 0.5 PUFF
     Route: 065
  111. LACTULOSE [Concomitant]
     Active Substance: LACTULOSE
     Indication: Prophylaxis
     Dosage: 10 ML, BID (0.5 DAY); PAIN FROM METASTASES
     Route: 048
  112. LACTULOSE [Concomitant]
     Active Substance: LACTULOSE
     Dosage: 10 ML, PER 0.5 DAY (PROPHYLAXIS OF OPIOID INDUCED CONSTIPATION)
     Route: 048
  113. LACTULOSE [Concomitant]
     Active Substance: LACTULOSE
     Dosage: 10 MILLILITER, BID PAIN FROM METASTASES
     Route: 048
  114. LACTULOSE [Concomitant]
     Active Substance: LACTULOSE
     Dosage: 10 ML, PER 0.5 DAY (PROPHYLAXIS OF OPIOID INDUCED CONSTIPATION)
  115. LACTULOSE [Concomitant]
     Active Substance: LACTULOSE
     Dosage: 10 ML, PER 0.5 DAY (PROPHYLAXIS OF OPIOID INDUCED CONSTIPATION)
     Route: 048
  116. LACTULOSE [Concomitant]
     Active Substance: LACTULOSE
     Dosage: 10 MILLILITER
     Route: 048
  117. LACTULOSE [Concomitant]
     Active Substance: LACTULOSE
     Dosage: 20 ML, QD (PHARMACEUTICAL DOSE FORM: 169)
     Route: 048
  118. QUETIAPINE [Concomitant]
     Active Substance: QUETIAPINE
     Indication: Depressed mood
     Dosage: UNK UNK, QD PAIN FROM METASTASES
     Route: 048
     Dates: start: 2020
  119. QUETIAPINE [Concomitant]
     Active Substance: QUETIAPINE
     Indication: Depressed mood
     Dosage: 100 MILLIGRAM, QD (DOSAGE FORM: 245); PAIN FROM METASTASES
     Route: 048
     Dates: end: 2020
  120. QUETIAPINE [Concomitant]
     Active Substance: QUETIAPINE
     Dosage: 150 MILLIGRAM, QD; PAIN FROM METASTASES (DOSE FORM: 245)
     Route: 048
     Dates: start: 2020
  121. QUETIAPINE [Concomitant]
     Active Substance: QUETIAPINE
     Dosage: 100 MILLIGRAM, QD; PAIN FROM METASTASES
     Route: 048
     Dates: start: 2020
  122. QUETIAPINE [Concomitant]
     Active Substance: QUETIAPINE
     Dosage: UNK, QD PAIN FROM METASTASES
     Route: 048
     Dates: start: 2020
  123. QUETIAPINE [Concomitant]
     Active Substance: QUETIAPINE
     Dosage: UNK, QD
     Route: 048
     Dates: start: 2020
  124. METFORMIN [Concomitant]
     Active Substance: METFORMIN HYDROCHLORIDE
     Indication: Product used for unknown indication
     Dosage: 1000 MILLIGRAM, QD; PAIN FROM METASTASES
     Route: 048
  125. METFORMIN [Concomitant]
     Active Substance: METFORMIN HYDROCHLORIDE
     Dosage: 500 MILLIGRAM, QD; PAIN FROM METASTASES
     Route: 048
  126. METFORMIN [Concomitant]
     Active Substance: METFORMIN HYDROCHLORIDE
     Dosage: 500 MILLIGRAM, QD; PAIN FROM METASTASES
     Route: 048
  127. OXYCODONE [Concomitant]
     Active Substance: OXYCODONE
     Indication: Cancer pain
     Dosage: 110 MG, BID (0.5 DAY) (PAIN FROM METASTASES; DOSAGE FORM: 245)
     Route: 048
  128. OXYCODONE [Concomitant]
     Active Substance: OXYCODONE
     Dosage: 110 MG, 0.5 DAY, PAIN FROM METASTASES
     Route: 048
  129. OXYCODONE [Concomitant]
     Active Substance: OXYCODONE
     Dosage: 220 MILLIGRAM, QD; PAIN FROM METASTASES (PHARMACEUTICAL DOSE FORM: 245)
     Route: 048
  130. OXYCODONE [Concomitant]
     Active Substance: OXYCODONE
     Dosage: BID
  131. CLENIL [BECLOMETASONE DIPROPIONATE] [Concomitant]
     Indication: Cancer pain
     Dosage: DOSE 2 PUFF (0.5 DAY)PAIN FROM METASTASES
     Route: 055
  132. CLENIL [BECLOMETASONE DIPROPIONATE] [Concomitant]
     Dosage: DOSE 2 PUFF; PAIN FROM METASTASES
     Route: 055
  133. CLENIL [BECLOMETASONE DIPROPIONATE] [Concomitant]
     Dosage: 2 OT, QD (DOSE 2 PUFF)
     Route: 055
  134. CLENIL [BECLOMETASONE DIPROPIONATE] [Concomitant]
     Dosage: 2 PUFF, BID; PAIN FROM METASTASES
     Route: 055
  135. CLONAZEPAM [Concomitant]
     Active Substance: CLONAZEPAM
     Indication: Muscle spasms
     Dosage: 250 MILLIGRAM, QD; PAIN FROM METASTASES
     Route: 048
     Dates: start: 2020
  136. CLONAZEPAM [Concomitant]
     Active Substance: CLONAZEPAM
     Indication: Muscle spasms
     Dosage: 250 MILLIGRAM, QD (ABDOMEN, LEG ON THE RIGHT)
     Dates: start: 202006
  137. CLONAZEPAM [Concomitant]
     Active Substance: CLONAZEPAM
     Indication: Muscle spasms
     Dosage: 250 MILLIGRAM, QD (ABDOMEN, LEG ON THE RIGHT)
     Dates: start: 202006
  138. CLONAZEPAM [Concomitant]
     Active Substance: CLONAZEPAM
     Indication: Abdominal rigidity
     Dosage: 250 MILLIGRAM, QD(ABDOMEN, LEG ON THE RIGHT)
     Dates: start: 202006
  139. CLONAZEPAM [Concomitant]
     Active Substance: CLONAZEPAM
     Dosage: 250 MILLIGRAM, QD (PHARMACEUTICAL DOSE FORM: 245)
     Route: 048
  140. MORPHINE [Concomitant]
     Active Substance: MORPHINE
     Indication: Cancer pain
     Dosage: 5 MILLIGRAM; PAIN FROM METASTASES
     Dates: start: 20181002, end: 20181002
  141. MORPHINE [Concomitant]
     Active Substance: MORPHINE
     Indication: Diarrhoea
     Dosage: 5 MILLIGRAM
     Dates: start: 20181002, end: 20181002
  142. MORPHINE [Concomitant]
     Active Substance: MORPHINE
     Indication: Vomiting
     Dosage: 5 MILLIGRAM
     Dates: start: 20181002, end: 20181002
  143. ONDANSETRON [Concomitant]
     Active Substance: ONDANSETRON
     Indication: Product used for unknown indication
     Dosage: 4 MILLIGRAM; PAIN FROM METASTASES
     Dates: start: 20181002, end: 20181002
  144. ONDANSETRON [Concomitant]
     Active Substance: ONDANSETRON
     Indication: Vomiting
     Dosage: 4 MILLIGRAM
     Route: 042
     Dates: start: 20181002, end: 20181002
  145. ONDANSETRON [Concomitant]
     Active Substance: ONDANSETRON
     Indication: Diarrhoea
     Dosage: 4 MILLIGRAM
     Route: 042
     Dates: start: 20181002, end: 20181002
  146. CHOLECALCIFEROL [Concomitant]
     Active Substance: CHOLECALCIFEROL
     Indication: Product used for unknown indication
     Dosage: 1 DOSAGE FORM, 0.5 DAY; PAIN FROM METASTASES
     Route: 048
  147. ERYTHROMYCIN [Concomitant]
     Active Substance: ERYTHROMYCIN
     Indication: Product used for unknown indication
     Dosage: 500 MILLIGRAM
     Route: 048
     Dates: start: 2020, end: 202007
  148. ERYTHROMYCIN [Concomitant]
     Active Substance: ERYTHROMYCIN
     Dosage: 2000 MG, QD (PHARMACEUTICAL DOSE FORM: 245)
     Route: 048
     Dates: start: 2020, end: 202007
  149. VANCOMYCIN [Concomitant]
     Active Substance: VANCOMYCIN
     Dosage: 1750 MILLIGRAM (0.5 DAY)
     Route: 042
     Dates: start: 20200612, end: 202006
  150. VANCOMYCIN [Concomitant]
     Active Substance: VANCOMYCIN
     Dosage: 3500 MG, QD
     Route: 042
     Dates: start: 20200312, end: 202006

REACTIONS (22)
  - Abdominal rigidity [Recovered/Resolved]
  - Abdominal rigidity [Recovered/Resolved with Sequelae]
  - Post procedural diarrhoea [Recovered/Resolved]
  - Abdominal pain [Recovered/Resolved]
  - Muscle spasms [Recovered/Resolved with Sequelae]
  - Vascular device infection [Recovered/Resolved]
  - Vascular device infection [Recovered/Resolved with Sequelae]
  - Device related infection [Recovered/Resolved]
  - Vomiting [Recovered/Resolved]
  - Diarrhoea [Recovered/Resolved]
  - Muscle spasms [Recovered/Resolved]
  - Vomiting [Recovered/Resolved]
  - Nausea [Recovered/Resolved]
  - Nausea [Recovered/Resolved]
  - Urinary tract infection [Recovered/Resolved]
  - Dizziness [Recovered/Resolved]
  - Headache [Recovered/Resolved]
  - Device related infection [Recovered/Resolved]
  - Back pain [Recovered/Resolved with Sequelae]
  - Off label use [Unknown]
  - Abdominal rigidity [Recovered/Resolved]
  - Muscle spasms [Recovered/Resolved with Sequelae]

NARRATIVE: CASE EVENT DATE: 20180904
